FAERS Safety Report 6736949-4 (Version None)
Quarter: 2010Q2

REPORT INFORMATION
  Report Type: 
  Country: None (occurrence: None)
  Receive Date: 20100522
  Receipt Date: 20100514
  Transmission Date: 20101027
  Serious: Yes (Other)
  Sender: FDA-Public Use
  Company Number: US-JNJFOC-20100505713

PATIENT
  Age: 18 Month
  Sex: Male
  Weight: 10.43 kg

DRUGS (6)
  1. CONCENTRATED MOTRIN INFANTS' DYE-FREE [Suspect]
     Route: 048
  2. CONCENTRATED MOTRIN INFANTS' DYE-FREE [Suspect]
     Indication: PYREXIA
     Dosage: EVERY 4-6 HOURS
     Route: 048
  3. CONCENTRATED TYLENOL INFANTS' DYE-FREE CHERRY [Suspect]
     Route: 048
  4. CONCENTRATED TYLENOL INFANTS' DYE-FREE CHERRY [Suspect]
     Indication: PYREXIA
     Dosage: EVERY 4-6 HOURS
     Route: 048
  5. CONCENTRATED TYLENOL INFANTS' GRAPE [Suspect]
     Route: 048
  6. CONCENTRATED TYLENOL INFANTS' GRAPE [Suspect]
     Indication: PYREXIA
     Dosage: EVERY 4-6 HOURS
     Route: 048

REACTIONS (3)
  - CONVULSION [None]
  - PNEUMONIA [None]
  - PRODUCT QUALITY ISSUE [None]
